FAERS Safety Report 5489763-4 (Version None)
Quarter: 2007Q4

REPORT INFORMATION
  Report Type: 
  Country: None (occurrence: None)
  Receive Date: 20071018
  Receipt Date: 20070227
  Transmission Date: 20080405
  Serious: No
  Sender: FDA-Public Use
  Company Number: US-ASTRAZENECA-2007UW00905

PATIENT
  Age: 15 Year
  Sex: Male
  Weight: 69.9 kg

DRUGS (2)
  1. MERREM [Suspect]
     Indication: BRAIN ABSCESS
     Route: 042
     Dates: start: 20061018, end: 20061124
  2. DILANTIN [Concomitant]

REACTIONS (2)
  - TONGUE DISCOLOURATION [None]
  - TOOTH DISCOLOURATION [None]
